APPROVED DRUG PRODUCT: NEOSAR
Active Ingredient: CYCLOPHOSPHAMIDE
Strength: 1GM/VIAL
Dosage Form/Route: INJECTABLE;INJECTION
Application: A087442 | Product #004
Applicant: BEDFORD LABORATORIES DIV BEN VENUE LABORATORIES INC
Approved: Jul 8, 1983 | RLD: No | RS: No | Type: DISCN